FAERS Safety Report 9566208 (Version 1)
Quarter: 2013Q3

REPORT INFORMATION
  Report Type: Spontaneous
  Country: US (occurrence: US)
  Receive Date: 20130930
  Receipt Date: 20130930
  Transmission Date: 20140515
  Serious: No
  Sender: FDA-Public Use
  Company Number: US-ASTRAZENECA-2013SE66188

PATIENT
  Age: 60 Year
  Sex: Female

DRUGS (1)
  1. BRILINTA [Suspect]
     Indication: CORONARY ARTERIAL STENT INSERTION
     Route: 048
     Dates: start: 20130502

REACTIONS (4)
  - Tinnitus [Unknown]
  - Cough [Unknown]
  - Parosmia [Unknown]
  - Dyspnoea [Unknown]
